FAERS Safety Report 20441003 (Version 1)
Quarter: 2022Q1

REPORT INFORMATION
  Report Type: Spontaneous
  Country: US (occurrence: US)
  Receive Date: 20220208
  Receipt Date: 20220208
  Transmission Date: 20220424
  Serious: No
  Sender: FDA-Public Use
  Company Number: US-ELI_LILLY_AND_COMPANY-US202201004009

PATIENT
  Sex: Male

DRUGS (1)
  1. EMGALITY [Suspect]
     Active Substance: GALCANEZUMAB-GNLM
     Indication: Product used for unknown indication
     Dosage: 100 MG, UNKNOWN
     Route: 065

REACTIONS (4)
  - Product dose omission issue [Unknown]
  - Product prescribing error [Unknown]
  - Incorrect dose administered [Unknown]
  - COVID-19 [Unknown]
